FAERS Safety Report 5425116-2 (Version None)
Quarter: 2007Q3

REPORT INFORMATION
  Report Type: 
  Country: None (occurrence: None)
  Receive Date: 20070824
  Receipt Date: 20070813
  Transmission Date: 20080115
  Serious: Yes (Other)
  Sender: FDA-Public Use
  Company Number: US-JNJFOC-20070605079

PATIENT
  Sex: Female
  Weight: 56.7 kg

DRUGS (5)
  1. ELMIRON [Suspect]
     Indication: CYSTITIS INTERSTITIAL
     Route: 048
  2. SYNTHROID [Concomitant]
     Indication: THYROID DISORDER
     Route: 065
  3. ACTIVELLA [Concomitant]
     Indication: HORMONE THERAPY
     Route: 065
  4. ALLEGRA [Concomitant]
     Indication: HYPERSENSITIVITY
     Route: 065
  5. DIOVAN [Concomitant]
     Indication: BLOOD PRESSURE
     Route: 065

REACTIONS (2)
  - ALOPECIA [None]
  - COLITIS ULCERATIVE [None]
